FAERS Safety Report 4948858-1 (Version None)
Quarter: 2006Q1

REPORT INFORMATION
  Report Type: 
  Country: None (occurrence: None)
  Receive Date: 20060321
  Receipt Date: 20060310
  Transmission Date: 20060701
  Serious: Yes (Life-Threatening, Hospitalization, Other)
  Sender: FDA-Public Use
  Company Number: CH-ABBOTT-06P-151-0327586-00

PATIENT
  Age: 43 Year
  Sex: Male

DRUGS (7)
  1. KLACID FILMTABLETTEN [Suspect]
     Indication: ACUTE SINUSITIS
     Route: 048
     Dates: start: 20060228, end: 20060303
  2. METHADONE HYDROCHOLORIDE [Interacting]
     Indication: MENTAL DISORDER
     Route: 048
     Dates: start: 20060201, end: 20060302
  3. METHADONE HYDROCHOLORIDE [Interacting]
     Indication: ABNORMAL BEHAVIOUR
  4. METHADONE HYDROCHOLORIDE [Interacting]
     Indication: ALCOHOL USE
  5. METHADONE HYDROCHOLORIDE [Interacting]
     Indication: DRUG DEPENDENCE
  6. OXAZEPAM [Concomitant]
     Indication: DEPRESSION
     Route: 048
     Dates: start: 20040101
  7. LAMOTRIGINE [Concomitant]
     Indication: DEPRESSION
     Route: 048
     Dates: start: 20050101

REACTIONS (7)
  - BLOOD PRESSURE DECREASED [None]
  - BRADYCARDIA [None]
  - DRUG INTERACTION [None]
  - ELECTROCARDIOGRAM QT PROLONGED [None]
  - EXTRASYSTOLES [None]
  - GAMMA-GLUTAMYLTRANSFERASE INCREASED [None]
  - POLYSUBSTANCE DEPENDENCE [None]
